FAERS Safety Report 10187316 (Version 1)
Quarter: 2014Q2

REPORT INFORMATION
  Report Type: Spontaneous
  Country: US (occurrence: US)
  Receive Date: 20140522
  Receipt Date: 20140522
  Transmission Date: 20141212
  Serious: No
  Sender: FDA-Public Use
  Company Number: US-PFIZER INC-2014138567

PATIENT
  Sex: Male

DRUGS (2)
  1. VFEND [Suspect]
     Dosage: UNK
  2. TARCEVA [Suspect]
     Indication: NEOPLASM MALIGNANT
     Dosage: UNK, 1X/DAY IN EVERY MORNING
     Dates: start: 201404

REACTIONS (3)
  - Nausea [Unknown]
  - Constipation [Unknown]
  - Rash [Unknown]
